FAERS Safety Report 24048090 (Version 2)
Quarter: 2024Q3

REPORT INFORMATION
  Report Type: Spontaneous
  Country: JP (occurrence: JP)
  Receive Date: 20240703
  Receipt Date: 20240728
  Transmission Date: 20241017
  Serious: Yes (Other)
  Sender: GLAXOSMITHKLINE
  Company Number: JP-GSKNCCC-Case-02013410_AE-84938

PATIENT

DRUGS (6)
  1. FLUTICASONE FUROATE [Suspect]
     Active Substance: FLUTICASONE FUROATE
     Indication: Nasal congestion
     Dosage: 1D IN EVENING, 2 SPRAYS IN EACH NASAL CAVITY
     Route: 045
     Dates: start: 20240502
  2. LEVOCETIRIZINE [Concomitant]
     Active Substance: LEVOCETIRIZINE
     Indication: Rhinitis
     Dosage: 5 MG
     Route: 048
     Dates: start: 20240502
  3. MONTELUKAST SODIUM [Concomitant]
     Active Substance: MONTELUKAST SODIUM
     Indication: Rhinitis
     Dosage: 10 MG
     Route: 048
     Dates: start: 20240502
  4. CP COMBINATION [Concomitant]
     Indication: Pigmentation disorder
     Dosage: 1 G, TID
     Route: 048
     Dates: start: 202402
  5. TRANEXAMIC ACID [Concomitant]
     Active Substance: TRANEXAMIC ACID
     Indication: Pigmentation disorder
     Dosage: 250 MG, TID
     Route: 048
     Dates: start: 202402
  6. ACTONEL [Concomitant]
     Active Substance: RISEDRONATE SODIUM
     Indication: Osteoporosis
     Dosage: UNK, MO
     Route: 048

REACTIONS (1)
  - Oesophageal candidiasis [Unknown]
